FAERS Safety Report 4990554-9 (Version None)
Quarter: 2006Q2

REPORT INFORMATION
  Report Type: 
  Country: None (occurrence: None)
  Receive Date: 20060427
  Receipt Date: 20060418
  Transmission Date: 20061013
  Serious: Yes (Other)
  Sender: FDA-Public Use
  Company Number: 2006049009

PATIENT
  Sex: Male

DRUGS (6)
  1. LIPITOR [Suspect]
     Indication: ILL-DEFINED DISORDER
     Dates: end: 20051101
  2. ZOLOFT [Suspect]
     Indication: ILL-DEFINED DISORDER
  3. ARICEPT [Suspect]
     Indication: ILL-DEFINED DISORDER
  4. LUMIGAN [Concomitant]
  5. ALPHAGAN [Concomitant]
  6. TOPROL-XL [Concomitant]

REACTIONS (6)
  - COLOSTOMY [None]
  - DECREASED APPETITE [None]
  - GALLBLADDER OPERATION [None]
  - MACULAR DEGENERATION [None]
  - NEPHROLITHIASIS [None]
  - WEIGHT DECREASED [None]
